FAERS Safety Report 12949750 (Version 2)
Quarter: 2020Q4

REPORT INFORMATION
  Report Type: Spontaneous
  Country: CA (occurrence: CA)
  Receive Date: 20161117
  Receipt Date: 20201222
  Transmission Date: 20210113
  Serious: Yes (Death)
  Sender: FDA-Public Use
  Company Number: CA-009507513-1611CAN007237

PATIENT
  Age: 76 Year
  Sex: Male
  Weight: 57 kg

DRUGS (13)
  1. AMLODIPINE [Concomitant]
     Active Substance: AMLODIPINE BESYLATE
     Dosage: UNK
  2. CALCIUM (UNSPECIFIED) [Concomitant]
     Active Substance: CALCIUM
     Dosage: UNK
  3. PLAVIX [Concomitant]
     Active Substance: CLOPIDOGREL BISULFATE
     Dosage: UNK
  4. LANTUS [Concomitant]
     Active Substance: INSULIN GLARGINE
     Dosage: UNK, DOSAGE FORM : SOLUTION SUBCUTANEOUS
  5. VITAMIN D (UNSPECIFIED) [Concomitant]
     Active Substance: VITAMIN D NOS
     Dosage: UNK
  6. METFORMIN [Concomitant]
     Active Substance: METFORMIN HYDROCHLORIDE
     Dosage: UNK
  7. CRESTOR [Concomitant]
     Active Substance: ROSUVASTATIN CALCIUM
     Dosage: UNK
  8. MEZAVANT [Concomitant]
     Active Substance: MESALAMINE
     Dosage: UNK, DOSAGE FORM : TABLET (DELAYED AND EXTENDED RELEASE)
  9. MICARDIS [Concomitant]
     Active Substance: TELMISARTAN
     Dosage: UNK
  10. PROSCAR [Concomitant]
     Active Substance: FINASTERIDE
     Dosage: UNK
  11. JANUVIA [Suspect]
     Active Substance: SITAGLIPTIN PHOSPHATE
     Indication: TYPE 2 DIABETES MELLITUS
     Dosage: 100 MG, 1 EVERY 1 DAY
     Route: 048
     Dates: start: 20090513, end: 2016
  12. CORTIFOAM [Concomitant]
     Active Substance: HYDROCORTISONE ACETATE
     Dosage: UNK, DOSAGE FORM : AEROSOL
  13. DIAMICRON MR [Concomitant]
     Active Substance: GLICLAZIDE
     Dosage: UNK, DOSAGE FORM : EXTENDED RELEASE

REACTIONS (3)
  - Metastases to lymph nodes [Fatal]
  - Pancreatic neoplasm [Fatal]
  - Metastases to liver [Fatal]
